FAERS Safety Report 4936398-5 (Version None)
Quarter: 2006Q1

REPORT INFORMATION
  Report Type: 
  Country: None (occurrence: None)
  Receive Date: 20060127
  Receipt Date: 20051014
  Transmission Date: 20060701
  Serious: Yes (Other)
  Sender: FDA-Public Use
  Company Number: 2005143353

PATIENT
  Age: 54 Year
  Sex: Female
  Weight: 92.5338 kg

DRUGS (9)
  1. PREGABALIN (PREGABALIN) [Suspect]
     Indication: NEUROPATHY
     Dosage: 150 MG (50 MG, 3 IN 1 D)
     Dates: start: 20051010
  2. TEGRETOL [Concomitant]
  3. CHLOROTHIAZIDE [Concomitant]
  4. PLAVIX [Concomitant]
  5. METFORMIN HCL [Concomitant]
  6. SYNTHROID [Concomitant]
  7. INDERAL [Concomitant]
  8. TRICOR [Concomitant]
  9. PAXIL [Concomitant]

REACTIONS (2)
  - GAIT DISTURBANCE [None]
  - VERTIGO [None]
